FAERS Safety Report 4471374-0 (Version None)
Quarter: 2004Q4

REPORT INFORMATION
  Report Type: 
  Country: None (occurrence: None)
  Receive Date: 20041006
  Receipt Date: 20041001
  Transmission Date: 20050328
  Serious: Yes (Hospitalization)
  Sender: FDA-Public Use
  Company Number: 234979K04USA

PATIENT
  Age: 59 Year
  Sex: Female

DRUGS (3)
  1. REBIF [Suspect]
     Indication: MULTIPLE SCLEROSIS
     Dosage: 8.8 MCG, NOT REPORTED, NOT REPORTED
     Dates: start: 20040902, end: 20040901
  2. LOTRIAL (ENALAPRIL) [Concomitant]
  3. ACTIVELLA (OESTRANORM) [Concomitant]

REACTIONS (8)
  - AMNESIA [None]
  - CONFUSIONAL STATE [None]
  - CYSTITIS [None]
  - DYSPEPSIA [None]
  - INCOHERENT [None]
  - INTESTINAL OBSTRUCTION [None]
  - PYREXIA [None]
  - VOMITING [None]
